FAERS Safety Report 9896468 (Version 1)
Quarter: 2014Q1

REPORT INFORMATION
  Report Type: Spontaneous
  Country: US (occurrence: US)
  Receive Date: 20140213
  Receipt Date: 20140213
  Transmission Date: 20141002
  Serious: No
  Sender: FDA-Public Use
  Company Number: US-BRISTOL-MYERS SQUIBB COMPANY-17453267

PATIENT
  Age: 64 Year
  Sex: Female
  Weight: 87.07 kg

DRUGS (2)
  1. ABATACEPT SUBQ INJECTION 125MG/ML [Suspect]
     Indication: RHEUMATOID ARTHRITIS
     Dosage: LAST DOSE-SECOND OR THIRD WEEK IN JAN13?TWO DOSES ON DEC12
     Route: 058
     Dates: start: 201212
  2. LYRICA [Suspect]
     Dosage: DOSE INCREASED-250MG,BID

REACTIONS (3)
  - Arthropathy [Unknown]
  - Vertigo [Unknown]
  - Sinusitis [Unknown]
